FAERS Safety Report 11934014 (Version 1)
Quarter: 2016Q1

REPORT INFORMATION
  Report Type: Report from Study
  Country: BR (occurrence: BR)
  Receive Date: 20160121
  Receipt Date: 20160121
  Transmission Date: 20160526
  Serious: Yes (Death)
  Sender: FDA-Public Use
  Company Number: PHHY2016BR007290

PATIENT
  Age: 80 Year
  Sex: Female
  Weight: 60 kg

DRUGS (2)
  1. PROPRANOLOL [Concomitant]
     Active Substance: PROPRANOLOL\PROPRANOLOL HYDROCHLORIDE
     Indication: ARRHYTHMIA
     Dosage: 1 DF, QD
     Route: 048
  2. EXELON PATCH [Suspect]
     Active Substance: RIVASTIGMINE
     Indication: DEMENTIA ALZHEIMER^S TYPE
     Dosage: PATCH 15 CM2
     Route: 062
     Dates: start: 201209

REACTIONS (5)
  - Urinary tract infection [Fatal]
  - Arrhythmia [Fatal]
  - Septic shock [Fatal]
  - Dementia Alzheimer^s type [Fatal]
  - Sepsis [Fatal]

NARRATIVE: CASE EVENT DATE: 20160111
